FAERS Safety Report 8470933-8 (Version None)
Quarter: 2012Q2

REPORT INFORMATION
  Report Type: 
  Country: None (occurrence: None)
  Receive Date: 20120620
  Receipt Date: 20120604
  Transmission Date: 20120825
  Serious: Yes (Hospitalization, Other)
  Sender: FDA-Public Use
  Company Number: 2012MA007049

PATIENT
  Age: 22 Year
  Sex: Female

DRUGS (3)
  1. VENLAFAXINE HCL [Suspect]
     Dosage: 300 MG;
  2. ARIPIPRAZOLE [Suspect]
  3. FLUOXETINE [Suspect]
     Dosage: 60 MG;

REACTIONS (7)
  - SLEEP DISORDER [None]
  - CRYING [None]
  - DRUG INTERACTION [None]
  - PANIC REACTION [None]
  - DEPRESSION [None]
  - SEROTONIN SYNDROME [None]
  - DRUG LEVEL INCREASED [None]
